FAERS Safety Report 12466183 (Version 2)
Quarter: 2016Q2

REPORT INFORMATION
  Report Type: Spontaneous
  Country: JP (occurrence: JP)
  Receive Date: 20160602
  Receipt Date: 20160629
  Transmission Date: 20160815
  Serious: Yes (Other)
  Sender: FDA-Public Use
  Company Number: JP-TEVA-663566ISR

PATIENT
  Age: 72 Year
  Sex: Male

DRUGS (2)
  1. CISPLATIN. [Suspect]
     Active Substance: CISPLATIN
     Indication: METASTATIC GASTRIC CANCER
  2. TEGAFUR [Suspect]
     Active Substance: TEGAFUR
     Indication: METASTATIC GASTRIC CANCER
     Route: 048

REACTIONS (1)
  - Small intestine ulcer [Recovered/Resolved]
